FAERS Safety Report 23986257 (Version 1)
Quarter: 2024Q2

REPORT INFORMATION
  Report Type: Spontaneous
  Country: US (occurrence: US)
  Receive Date: 20240618
  Receipt Date: 20240618
  Transmission Date: 20240715
  Serious: No
  Sender: FDA-Public Use
  Company Number: US-HALEON-2181816

PATIENT

DRUGS (1)
  1. FLONASE SENSIMIST ALLERGY RELIEF [Suspect]
     Active Substance: FLUTICASONE FUROATE
     Route: 045

REACTIONS (1)
  - Therapeutic response unexpected [Unknown]
